FAERS Safety Report 5671021-6 (Version None)
Quarter: 2008Q1

REPORT INFORMATION
  Report Type: 
  Country: None (occurrence: None)
  Receive Date: 20080318
  Receipt Date: 20080307
  Transmission Date: 20080703
  Serious: Yes (Other)
  Sender: FDA-Public Use
  Company Number: US-ELI_LILLY_AND_COMPANY-US200803001716

PATIENT
  Sex: Male

DRUGS (1)
  1. HUMATROPE [Suspect]

REACTIONS (1)
  - BLINDNESS [None]
